FAERS Safety Report 24886110 (Version 3)
Quarter: 2025Q3

REPORT INFORMATION
  Report Type: Report from Study
  Country: US (occurrence: US)
  Receive Date: 20250125
  Receipt Date: 20250819
  Transmission Date: 20251021
  Serious: Yes (Hospitalization, Disabling, Other)
  Sender: ABBVIE
  Company Number: US-ABBVIE-6082024

PATIENT
  Age: 69 Year
  Sex: Female
  Weight: 71.213 kg

DRUGS (6)
  1. HUMIRA [Suspect]
     Active Substance: ADALIMUMAB
     Indication: Rheumatoid arthritis
     Route: 058
     Dates: start: 20200605
  2. HUMIRA [Suspect]
     Active Substance: ADALIMUMAB
     Indication: Osteoporosis
     Dosage: CITRATE FREE; FIRST ADMIN DATE: BEFORE 2010; FORM STRENGTH: 40 MILLIGRAM?DOSE: SOLUTION FOR INJEC...
     Route: 058
  3. HUMIRA [Suspect]
     Active Substance: ADALIMUMAB
     Indication: Psoriatic arthropathy
     Route: 058
     Dates: start: 20140515
  4. VITAMIN D [Concomitant]
     Active Substance: VITAMIN D NOS
     Indication: Vitamin supplementation
     Dosage: 50000 UNIT
  5. METHOTREXATE [Concomitant]
     Active Substance: METHOTREXATE
     Indication: Rheumatoid arthritis
  6. TYMLOS [Suspect]
     Active Substance: ABALOPARATIDE
     Indication: Femur fracture

REACTIONS (9)
  - Osteoporosis [Not Recovered/Not Resolved]
  - Pneumonia [Recovering/Resolving]
  - Gait inability [Not Recovered/Not Resolved]
  - Hypotension [Not Recovered/Not Resolved]
  - Femur fracture [Not Recovered/Not Resolved]
  - Arthralgia [Recovering/Resolving]
  - Bone density abnormal [Recovering/Resolving]
  - Fall [Unknown]
  - Asthenia [Not Recovered/Not Resolved]

NARRATIVE: CASE EVENT DATE: 20240101
